FAERS Safety Report 25154931 (Version 1)
Quarter: 2025Q2

REPORT INFORMATION
  Report Type: Spontaneous
  Country: US (occurrence: None)
  Receive Date: 20250402
  Receipt Date: 20250402
  Transmission Date: 20250716
  Serious: No
  Sender: FDA-CTU
  Company Number: None

PATIENT
  Sex: Female

DRUGS (14)
  1. AMBRISENTAN [Suspect]
     Active Substance: AMBRISENTAN
     Indication: Pulmonary hypertension
     Dosage: FREQUENCY : DAILY;?
     Route: 048
  2. ACTEMRA [Concomitant]
     Active Substance: TOCILIZUMAB
  3. OCTREOTIDE [Concomitant]
     Active Substance: OCTREOTIDE
  4. LISINOPRIL [Concomitant]
     Active Substance: LISINOPRIL
  5. DIAZEPAM [Concomitant]
     Active Substance: DIAZEPAM
  6. KINERET [Concomitant]
     Active Substance: ANAKINRA
  7. FOLIC ACID [Concomitant]
     Active Substance: FOLIC ACID
  8. PREDNISONE [Concomitant]
     Active Substance: PREDNISONE
  9. XARELTO [Concomitant]
     Active Substance: RIVAROXABAN
  10. IRON TR [Concomitant]
  11. LASIX [Concomitant]
     Active Substance: FUROSEMIDE
  12. METHYLDOPATE HCL [Concomitant]
  13. TADALAFIL [Concomitant]
     Active Substance: TADALAFIL
  14. KEPPRA [Concomitant]
     Active Substance: LEVETIRACETAM

REACTIONS (2)
  - Hospitalisation [None]
  - Therapy interrupted [None]
